FAERS Safety Report 7938235-3 (Version None)
Quarter: 2011Q4

REPORT INFORMATION
  Report Type: 
  Country: None (occurrence: None)
  Receive Date: 20111123
  Receipt Date: 20111117
  Transmission Date: 20120403
  Serious: Yes (Other)
  Sender: FDA-Public Use
  Company Number: CHPA2011US016329

PATIENT
  Age: 34 Year
  Sex: Male

DRUGS (1)
  1. EXCEDRIN (MIGRAINE) [Suspect]
     Indication: NECK PAIN
     Dosage: UNK DF, UNK
     Route: 048
     Dates: start: 20111114

REACTIONS (7)
  - DYSSTASIA [None]
  - HAEMATEMESIS [None]
  - GAIT DISTURBANCE [None]
  - OFF LABEL USE [None]
  - VERTIGO [None]
  - LABYRINTHITIS [None]
  - SINUSITIS [None]
